FAERS Safety Report 8329445-4 (Version None)
Quarter: 2012Q2

REPORT INFORMATION
  Report Type: 
  Country: None (occurrence: None)
  Receive Date: 20120430
  Receipt Date: 20120417
  Transmission Date: 20120825
  Serious: Yes (Other)
  Sender: FDA-Public Use
  Company Number: KR-JNJFOC-20120410491

PATIENT

DRUGS (2)
  1. DECITABINE [Suspect]
     Indication: MYELODYSPLASTIC SYNDROME
     Dosage: 20 MG/M2, 1 IN 1 D, INTRAVENOUS
     Route: 042
  2. AZACITIDINE [Suspect]
     Indication: MYELODYSPLASTIC SYNDROME
     Dosage: 75 MG/M2, 1 IN 1 DAY, SUBCUTANEOUS
     Route: 058

REACTIONS (3)
  - INFECTION [None]
  - PANCYTOPENIA [None]
  - FEBRILE NEUTROPENIA [None]
